FAERS Safety Report 13163446 (Version 1)
Quarter: 2017Q1

REPORT INFORMATION
  Report Type: Other
  Country: US (occurrence: US)
  Receive Date: 20170130
  Receipt Date: 20170130
  Transmission Date: 20170428
  Serious: Yes (Other)
  Sender: FDA-Public Use
  Company Number: US-COL_25614_2017

PATIENT
  Age: 63 Year
  Sex: Female

DRUGS (2)
  1. THYROID MEDICATION [Concomitant]
     Active Substance: UNSPECIFIED INGREDIENT
     Indication: THYROID THERAPY
     Dosage: NI/NI/
  2. TOM^S NATURAL FLUORIDE FREE FRESH MINT [Suspect]
     Active Substance: COSMETICS
     Indication: DENTAL DISORDER PROPHYLAXIS
     Dosage: FILLS 1/2 A BRUSH/2 TO 3 TIMES A DAY
     Route: 048
     Dates: end: 201612

REACTIONS (3)
  - Breast cancer recurrent [Unknown]
  - C-reactive protein increased [Unknown]
  - Joint stiffness [Recovering/Resolving]

NARRATIVE: CASE EVENT DATE: 2016
